FAERS Safety Report 7523003-7 (Version None)
Quarter: 2011Q2

REPORT INFORMATION
  Report Type: 
  Country: None (occurrence: None)
  Receive Date: 20110603
  Receipt Date: 20110525
  Transmission Date: 20111010
  Serious: Yes (Hospitalization)
  Sender: FDA-Public Use
  Company Number: FR-MERCK-1105FRA00129

PATIENT

DRUGS (1)
  1. STROMECTOL [Suspect]
     Indication: INFESTATION
     Route: 048
     Dates: start: 20110522, end: 20110522

REACTIONS (3)
  - AGGRESSION [None]
  - ABNORMAL BEHAVIOUR [None]
  - CONFUSIONAL STATE [None]
